FAERS Safety Report 21446329 (Version 1)
Quarter: 2022Q4

REPORT INFORMATION
  Report Type: Spontaneous
  Country: US (occurrence: US)
  Receive Date: 20221012
  Receipt Date: 20221012
  Transmission Date: 20230112
  Serious: No
  Sender: FDA-Public Use
  Company Number: US-PFIZER INC-202201222352

PATIENT
  Age: 67 Year
  Sex: Male
  Weight: 129.27 kg

DRUGS (1)
  1. PAXLOVID [Suspect]
     Active Substance: NIRMATRELVIR\RITONAVIR
     Indication: COVID-19 treatment
     Dosage: UNK, (300MG/100MG DOSE PACK)
     Dates: start: 20221005

REACTIONS (4)
  - Weight decreased [Unknown]
  - Dysstasia [Unknown]
  - Fatigue [Unknown]
  - Dysgeusia [Unknown]

NARRATIVE: CASE EVENT DATE: 20221006
